FAERS Safety Report 9433768 (Version 1)
Quarter: 2013Q3

REPORT INFORMATION
  Report Type: Spontaneous
  Country: US (occurrence: US)
  Receive Date: 20130731
  Receipt Date: 20130731
  Transmission Date: 20140515
  Serious: Yes (Other)
  Sender: FDA-Public Use
  Company Number: CHPA2013US011889

PATIENT
  Age: 83 Year
  Sex: Male

DRUGS (2)
  1. EXCEDRIN EXTRA STRENGTH [Suspect]
     Indication: PROPHYLAXIS
     Dosage: 1-2 DF, QD
     Route: 048
  2. EXCEDRIN EXTRA STRENGTH [Suspect]
     Indication: HEADACHE

REACTIONS (4)
  - Renal impairment [Not Recovered/Not Resolved]
  - Therapeutic response unexpected [Unknown]
  - Off label use [Unknown]
  - Underdose [Unknown]
